FAERS Safety Report 5129917-X (Version None)
Quarter: 2006Q4

REPORT INFORMATION
  Report Type: 
  Country: None (occurrence: None)
  Receive Date: 20061012
  Receipt Date: 20061002
  Transmission Date: 20070319
  Serious: Yes (Hospitalization)
  Sender: FDA-Public Use
  Company Number: HQWYE944412DEC05

PATIENT
  Age: 64 Year
  Sex: Male

DRUGS (6)
  1. PANTOPRAZOLE SODIUM [Suspect]
     Dosage: 20 MG 1X PER 1 DAY
     Route: 048
     Dates: start: 20050414, end: 20051021
  2. NEXEN (NIMESULIDE, ) [Concomitant]
     Dosage: 200 MG 1X PER 1 DAY
     Route: 048
     Dates: start: 20050414, end: 20051021
  3. MODURETIC 5-50 [Concomitant]
  4. LEVOTHYROXINE SODIUM [Concomitant]
  5. TRIVASTAL (PIRIBEDIL) [Concomitant]
  6. OMIX (TAMSULOSIN HYDROCHLORIDE) [Concomitant]

REACTIONS (2)
  - HEPATIC STEATOSIS [None]
  - HEPATITIS [None]
